FAERS Safety Report 11021494 (Version 1)
Quarter: 2015Q2

REPORT INFORMATION
  Report Type: Spontaneous
  Country: CA (occurrence: CA)
  Receive Date: 20150413
  Receipt Date: 20150413
  Transmission Date: 20150821
  Serious: Yes (Other)
  Sender: FDA-Public Use
  Company Number: CA-PFIZER INC-2015119506

PATIENT
  Age: 59 Year
  Sex: Female

DRUGS (1)
  1. PREMARIN [Suspect]
     Active Substance: ESTROGENS, CONJUGATED
     Indication: HORMONE REPLACEMENT THERAPY
     Dosage: 0.3 MG, 1X/DAY OLD FORMULATION
     Route: 048
     Dates: end: 2015

REACTIONS (2)
  - Bronchitis [Recovering/Resolving]
  - Haemorrhoidal haemorrhage [Not Recovered/Not Resolved]

NARRATIVE: CASE EVENT DATE: 2015
